FAERS Safety Report 8209557-6 (Version None)
Quarter: 2012Q1

REPORT INFORMATION
  Report Type: 
  Country: None (occurrence: None)
  Receive Date: 20120227
  Receipt Date: 20111228
  Transmission Date: 20120608
  Serious: No
  Sender: FDA-Public Use
  Company Number: 342192

PATIENT
  Age: 61 Year
  Sex: Female

DRUGS (2)
  1. NOVO TWIST 5 MG (32G) (NOVOTWIST) [Concomitant]
  2. VICTOZA [Suspect]
     Indication: TYPE 2 DIABETES MELLITUS
     Dosage: SUBCUTANEOUS
     Route: 058

REACTIONS (4)
  - BLOOD GLUCOSE INCREASED [None]
  - DEVICE FAILURE [None]
  - INJECTION SITE HAEMORRHAGE [None]
  - INJECTION SITE HAEMATOMA [None]
